FAERS Safety Report 8646174 (Version 5)
Quarter: 2012Q4

REPORT INFORMATION
  Report Type: 
  Country: US (occurrence: US)
  Receive Date: 20120702
  Receipt Date: 20120904
  Transmission Date: 20130627
  Serious: Yes (Hospitalization)
  Sender: FDA-Public Use
  Company Number: US-ACTELION-A-US2012-65591

PATIENT
  Age: 50 Year
  Sex: Female
  Weight: 59.86 kg

DRUGS (4)
  1. VELETRI [Suspect]
     Indication: PULMONARY ARTERIAL HYPERTENSION
     Dosage: 44 ng/kg, per min
     Route: 042
     Dates: start: 20110305
  2. TRACLEER [Suspect]
     Indication: PULMONARY ARTERIAL HYPERTENSION
     Dosage: 125 mg, bid
     Route: 048
     Dates: start: 20120507
  3. TADALAFIL [Concomitant]
  4. COUMADIN [Concomitant]

REACTIONS (10)
  - Fluid retention [Unknown]
  - Oedema peripheral [Unknown]
  - Fluid overload [Unknown]
  - pH body fluid abnormal [Unknown]
  - Infection [Unknown]
  - Ascites [Unknown]
  - Dyspnoea exertional [Unknown]
  - Condition aggravated [Unknown]
  - Pericardial effusion [Unknown]
  - Weight increased [Unknown]
